FAERS Safety Report 5711078-7 (Version None)
Quarter: 2008Q2

REPORT INFORMATION
  Report Type: 
  Country: None (occurrence: None)
  Receive Date: 20080421
  Receipt Date: 20080411
  Transmission Date: 20081010
  Serious: Yes (Other)
  Sender: FDA-Public Use
  Company Number: CA-BAYER-200819273NA

PATIENT
  Age: 51 Year
  Sex: Male
  Weight: 61 kg

DRUGS (5)
  1. NEXAVAR [Suspect]
     Indication: HEPATIC NEOPLASM MALIGNANT
     Dosage: TOTAL DAILY DOSE: 800 MG  UNIT DOSE: 200 MG
     Route: 048
     Dates: start: 20071201, end: 20080101
  2. NEXAVAR [Suspect]
     Dosage: TOTAL DAILY DOSE: 400 MG  UNIT DOSE: 200 MG
     Route: 048
     Dates: start: 20080304
  3. GLYBURIDE [Concomitant]
     Indication: TYPE 2 DIABETES MELLITUS
     Dosage: TOTAL DAILY DOSE: 10 MG
     Route: 048
  4. OXAZEPAM [Concomitant]
     Indication: ANXIETY
     Route: 048
  5. IMOVANE [Concomitant]
     Indication: INSOMNIA
     Route: 048

REACTIONS (3)
  - BLOOD BILIRUBIN INCREASED [None]
  - DIARRHOEA [None]
  - TRANSAMINASES INCREASED [None]
